FAERS Safety Report 7704451-9 (Version None)
Quarter: 2011Q3

REPORT INFORMATION
  Report Type: 
  Country: None (occurrence: None)
  Receive Date: 20110823
  Receipt Date: 20110811
  Transmission Date: 20111222
  Serious: Yes (Death)
  Sender: FDA-Public Use
  Company Number: US-CELGENEUS-163-21880-07051606

PATIENT
  Sex: Male

DRUGS (1)
  1. REVLIMID [Suspect]
     Indication: MULTIPLE MYELOMA
     Dosage: 15 MILLIGRAM
     Route: 048
     Dates: start: 20070426

REACTIONS (4)
  - ATRIAL FIBRILLATION [None]
  - NEUROPATHY PERIPHERAL [None]
  - MULTIPLE MYELOMA [None]
  - NEUTROPENIA [None]
